FAERS Safety Report 8066180-4 (Version None)
Quarter: 2012Q1

REPORT INFORMATION
  Report Type: 
  Country: None (occurrence: None)
  Receive Date: 20120124
  Receipt Date: 20120113
  Transmission Date: 20120608
  Serious: Yes (Death, Other)
  Sender: FDA-Public Use
  Company Number: JP-TEVA-2011003319

PATIENT
  Sex: Male
  Weight: 85.5 kg

DRUGS (6)
  1. BENDAMUSTINE [Suspect]
     Indication: B-CELL LYMPHOMA
     Route: 042
     Dates: start: 20110207, end: 20110602
  2. ACYCLOVIR [Concomitant]
     Dates: start: 20110217
  3. FLUCONAZOLE [Concomitant]
  4. CARVEDILOL [Concomitant]
  5. PREDNISOLONE [Concomitant]
     Dates: end: 20110617
  6. MAGNESIUM OXIDE [Concomitant]
     Dates: start: 20110210, end: 20110219

REACTIONS (9)
  - PNEUMONITIS [None]
  - ARRHYTHMIA [None]
  - NEUTROPENIA [None]
  - PLEURAL EFFUSION [None]
  - LYMPHOCYTE COUNT DECREASED [None]
  - NEUTROPHIL COUNT DECREASED [None]
  - FEBRILE NEUTROPENIA [None]
  - CARDIAC FAILURE [None]
  - WHITE BLOOD CELL COUNT DECREASED [None]
